FAERS Safety Report 15363397 (Version 1)
Quarter: 2018Q3

REPORT INFORMATION
  Report Type: Spontaneous
  Country: US (occurrence: US)
  Receive Date: 20180907
  Receipt Date: 20180907
  Transmission Date: 20181010
  Serious: Yes (Hospitalization)
  Sender: FDA-Public Use
  Company Number: US-PFIZER INC-2018362203

PATIENT
  Age: 79 Year
  Sex: Female
  Weight: 88 kg

DRUGS (1)
  1. ADVIL LIQUI?GELS [Suspect]
     Active Substance: IBUPROFEN
     Indication: ARTHRITIS
     Dosage: 1 DF, 1X/DAY (ONE CAPSULE IN THE MORNING SELDOM HAD TO TAKE ANOTHER)2 YEARS OR LONGER
     Route: 048
     Dates: end: 20180719

REACTIONS (3)
  - Pyrexia [Unknown]
  - Intentional product use issue [Unknown]
  - Renal function test abnormal [Unknown]

NARRATIVE: CASE EVENT DATE: 20180719
